FAERS Safety Report 5311752-0 (Version None)
Quarter: 2007Q2

REPORT INFORMATION
  Report Type: 
  Country: None (occurrence: None)
  Receive Date: 20070426
  Receipt Date: 20070426
  Transmission Date: 20071010
  Serious: Yes (Hospitalization)
  Sender: FDA-Public Use
  Company Number: None

PATIENT
  Age: 76 Year
  Sex: Male
  Weight: 78.7 kg

DRUGS (11)
  1. WARFARIN SODIUM [Suspect]
     Indication: ATRIAL FIBRILLATION
     Dosage: 5MG MWF AND 2.5MG REST
     Dates: start: 20060823
  2. WARFARIN SODIUM [Suspect]
     Indication: NON-SMALL CELL LUNG CANCER
     Dosage: 5MG MWF AND 2.5MG REST
     Dates: start: 20060823
  3. LISINOPRIL [Concomitant]
  4. LANOXIN [Concomitant]
  5. ERLOTINIB [Concomitant]
  6. B12 [Concomitant]
  7. DILTIAZEM [Concomitant]
  8. FOLIC ACID [Concomitant]
  9. MEGESTROL ACETATE [Concomitant]
  10. NAPROXEN [Concomitant]
  11. TETRACYCLINE HCL [Concomitant]

REACTIONS (19)
  - ANOREXIA [None]
  - BAND NEUTROPHIL COUNT INCREASED [None]
  - BLOOD ALBUMIN DECREASED [None]
  - CHEST PAIN [None]
  - COUGH [None]
  - DRUG TOXICITY [None]
  - DYSPHAGIA [None]
  - FEELING COLD [None]
  - HAEMATEMESIS [None]
  - HAEMOPTYSIS [None]
  - HAEMORRHAGE [None]
  - INJURY [None]
  - INTERNATIONAL NORMALISED RATIO INCREASED [None]
  - LUNG CONSOLIDATION [None]
  - OESOPHAGEAL STENOSIS [None]
  - ORAL INTAKE REDUCED [None]
  - PNEUMONIA [None]
  - PREALBUMIN DECREASED [None]
  - WHITE BLOOD CELL COUNT INCREASED [None]
